FAERS Safety Report 12154360 (Version 2)
Quarter: 2016Q2

REPORT INFORMATION
  Report Type: Spontaneous
  Country: US (occurrence: US)
  Receive Date: 20160307
  Receipt Date: 20160606
  Transmission Date: 20160815
  Serious: No
  Sender: FDA-Public Use
  Company Number: US-ASTRAZENECA-2016SE20376

PATIENT
  Sex: Female

DRUGS (1)
  1. CRESTOR [Suspect]
     Active Substance: ROSUVASTATIN CALCIUM
     Indication: BLOOD CHOLESTEROL
     Route: 048

REACTIONS (5)
  - Mobility decreased [Unknown]
  - Tendon injury [Not Recovered/Not Resolved]
  - Adverse event [Unknown]
  - Muscle injury [Unknown]
  - Pain in extremity [Not Recovered/Not Resolved]
